FAERS Safety Report 22291421 (Version 1)
Quarter: 2023Q2

REPORT INFORMATION
  Report Type: Report from Study
  Country: US (occurrence: US)
  Receive Date: 20230506
  Receipt Date: 20230506
  Transmission Date: 20230721
  Serious: No
  Sender: FDA-Public Use
  Company Number: US-002147023-NVSC2023US104280

PATIENT
  Sex: Male

DRUGS (1)
  1. ENTRESTO [Suspect]
     Active Substance: SACUBITRIL\VALSARTAN
     Indication: Product used for unknown indication
     Dosage: 24 MG, BID
     Route: 065
     Dates: start: 202304

REACTIONS (4)
  - Musculoskeletal stiffness [Unknown]
  - Achlorhydria [Unknown]
  - Malaise [Unknown]
  - Blood pressure decreased [Recovering/Resolving]
